FAERS Safety Report 21422843 (Version 1)
Quarter: 2022Q4

REPORT INFORMATION
  Report Type: Report from Study
  Country: FR (occurrence: FR)
  Receive Date: 20221007
  Receipt Date: 20221007
  Transmission Date: 20230113
  Serious: Yes (Hospitalization)
  Sender: FDA-Public Use
  Company Number: FR-SERVIER-S22010173

PATIENT

DRUGS (7)
  1. PEGASPARGASE [Suspect]
     Active Substance: PEGASPARGASE
     Indication: Acute lymphocytic leukaemia
     Dosage: 1263 [IU], D15, D43
     Route: 042
     Dates: start: 20220318, end: 20220509
  2. CYCLOPHOSPHAMIDE [Suspect]
     Active Substance: CYCLOPHOSPHAMIDE
     Indication: Acute lymphocytic leukaemia
     Dosage: 980 MG, D1, D22
     Route: 042
     Dates: start: 20220318, end: 20220418
  3. CYTARABINE [Suspect]
     Active Substance: CYTARABINE
     Indication: Acute lymphocytic leukaemia
     Dosage: 30 MG, D4
     Route: 037
     Dates: start: 20220321, end: 20220321
  4. CYTARABINE [Suspect]
     Active Substance: CYTARABINE
     Dosage: 75 MG, D4, D5, D6, D7, D11, D33
     Route: 042
     Dates: start: 20220321, end: 20220429
  5. HYDROCORTISONE [Suspect]
     Active Substance: HYDROCORTISONE
     Indication: Acute lymphocytic leukaemia
     Dosage: 15 MG, D4
     Route: 037
     Dates: start: 20220321, end: 20220321
  6. METHOTREXATE [Suspect]
     Active Substance: METHOTREXATE
     Indication: Acute lymphocytic leukaemia
     Dosage: 12 MG, D4
     Route: 037
     Dates: start: 20220321, end: 20220321
  7. VINCRISTINE [Suspect]
     Active Substance: VINCRISTINE
     Indication: Acute lymphocytic leukaemia
     Dosage: 1.5 MG, D15, D43, D50
     Route: 042
     Dates: start: 20220401, end: 20220509

REACTIONS (2)
  - Allergic transfusion reaction [Recovered/Resolved]
  - Allergic transfusion reaction [Recovered/Resolved]

NARRATIVE: CASE EVENT DATE: 20220511
